FAERS Safety Report 4535564-0 (Version None)
Quarter: 2004Q4

REPORT INFORMATION
  Report Type: 
  Country: None (occurrence: None)
  Receive Date: 20041214
  Receipt Date: 20041011
  Transmission Date: 20050328
  Serious: Yes (Other)
  Sender: FDA-Public Use
  Company Number: 2004238073US

PATIENT
  Age: 24 Year
  Sex: Male

DRUGS (2)
  1. BEXTRA [Suspect]
     Dosage: 10 MG
  2. CELEBREX [Concomitant]

REACTIONS (1)
  - ANAPHYLACTIC SHOCK [None]
